FAERS Safety Report 19725531 (Version 2)
Quarter: 2021Q3

REPORT INFORMATION
  Report Type: Report from Study
  Country: CN (occurrence: CN)
  Receive Date: 20210819
  Receipt Date: 20210826
  Transmission Date: 20211014
  Serious: Yes (Hospitalization)
  Sender: FDA-Public Use
  Company Number: CN-ROCHE-2858254

PATIENT
  Age: 51 Year
  Sex: Male
  Weight: 57 kg

DRUGS (6)
  1. GLYCERINE ENEMA [Concomitant]
     Dates: start: 20210530
  2. LACTULOSE. [Concomitant]
     Active Substance: LACTULOSE
     Dates: start: 20210530
  3. ETOPOSIDE. [Suspect]
     Active Substance: ETOPOSIDE
     Indication: SMALL CELL LUNG CANCER EXTENSIVE STAGE
     Dosage: LAST DOSE BEFORE EVENT ONSET ON 29/MAY/2021, 25/JUL/2021 (120 MG)
     Route: 042
     Dates: start: 20210528
  4. MANNITOL. [Concomitant]
     Active Substance: MANNITOL
     Dates: start: 20210526
  5. CISPLATIN. [Suspect]
     Active Substance: CISPLATIN
     Indication: SMALL CELL LUNG CANCER EXTENSIVE STAGE
     Dosage: LAST DOSE BEFORE EVENT ONSET 29/MAY/2021, 25/JUL/2021 (28 MG)
     Route: 042
     Dates: start: 20210528
  6. ATEZOLIZUMAB. [Suspect]
     Active Substance: ATEZOLIZUMAB
     Indication: SMALL CELL LUNG CANCER EXTENSIVE STAGE
     Dosage: LAST DOSE PRIOR TO EVENT ONSET ON 27/MAY/2021 AND 23/JUL/2021, 1200 MG
     Route: 041
     Dates: start: 20210527

REACTIONS (2)
  - Neutropenia [Recovered/Resolved]
  - Anal abscess [Not Recovered/Not Resolved]

NARRATIVE: CASE EVENT DATE: 20210615
